FAERS Safety Report 8029142-9 (Version None)
Quarter: 2012Q1

REPORT INFORMATION
  Report Type: 
  Country: None (occurrence: None)
  Receive Date: 20120106
  Receipt Date: 20120102
  Transmission Date: 20120608
  Serious: Yes (Hospitalization)
  Sender: FDA-Public Use
  Company Number: PHHY2012FR000875

PATIENT
  Age: 32 Year
  Sex: Female

DRUGS (2)
  1. DEPAKENE [Suspect]
     Dosage: 1250 MG/DAY
  2. TRILEPTAL [Suspect]
     Dosage: 600 MG/DAY
     Route: 048
     Dates: start: 20090101

REACTIONS (6)
  - BLOOD ALKALINE PHOSPHATASE INCREASED [None]
  - INFLAMMATION [None]
  - CHOLESTASIS [None]
  - GAMMA-GLUTAMYLTRANSFERASE INCREASED [None]
  - C-REACTIVE PROTEIN INCREASED [None]
  - HAEMANGIOMA OF LIVER [None]
